FAERS Safety Report 6540853-4 (Version None)
Quarter: 2010Q1

REPORT INFORMATION
  Report Type: 
  Country: None (occurrence: None)
  Receive Date: 20100118
  Receipt Date: 20100111
  Transmission Date: 20100710
  Serious: Yes (Death, Hospitalization, Other)
  Sender: FDA-Public Use
  Company Number: PHHY2010BR01552

PATIENT
  Sex: Female

DRUGS (2)
  1. DIOVAN [Suspect]
     Indication: HYPERTENSION
     Dosage: UNK
     Dates: end: 20091001
  2. SYNTHROID [Concomitant]
     Indication: THYROID DISORDER
     Dosage: UNK
     Dates: end: 20091001

REACTIONS (12)
  - ABDOMINAL PAIN [None]
  - COLOSTOMY [None]
  - CONSTIPATION [None]
  - DIARRHOEA [None]
  - ENDOTRACHEAL INTUBATION [None]
  - FAECAL INCONTINENCE [None]
  - FAECES DISCOLOURED [None]
  - FALL [None]
  - FEMUR FRACTURE [None]
  - GASTROINTESTINAL CARCINOMA [None]
  - HAEMODIALYSIS [None]
  - PROSTHESIS IMPLANTATION [None]
